FAERS Safety Report 5118476-3 (Version None)
Quarter: 2006Q4

REPORT INFORMATION
  Report Type: 
  Country: None (occurrence: None)
  Receive Date: 20061002
  Receipt Date: 20040503
  Transmission Date: 20070319
  Serious: Yes (Other)
  Sender: FDA-Public Use
  Company Number: PHBS2004BR05992

PATIENT
  Age: 84 Year
  Sex: Female
  Weight: 86 kg

DRUGS (13)
  1. EXELON [Suspect]
     Indication: DEMENTIA ALZHEIMER'S TYPE
     Dosage: 1.5 MG/D
     Route: 048
     Dates: start: 20031101
  2. EXELON [Suspect]
     Dosage: 6 MG, BID
     Route: 048
  3. TARGIFOR [Concomitant]
     Indication: NAUSEA
     Dosage: UNK, QD
     Route: 048
  4. MOTILIUM [Concomitant]
     Indication: NAUSEA
     Dosage: UNK, TID
     Route: 048
  5. BEROCCA [Concomitant]
     Dosage: .5 DF, QD
     Route: 048
  6. NORFLOXACIN [Concomitant]
     Indication: URINARY TRACT INFECTION
     Dosage: UNK, BID
     Route: 048
     Dates: start: 20040501
  7. SERTRALINE [Concomitant]
     Indication: DEPRESSION
     Dosage: UNK, QD
     Route: 048
     Dates: start: 20030101
  8. PLASIL [Concomitant]
     Dosage: UNK, TID
     Route: 048
     Dates: start: 20040501
  9. GARAMYCINA [Concomitant]
     Indication: URINARY TRACT INFECTION
     Dosage: 2 DF, QD
     Route: 030
  10. ZOLOFT [Concomitant]
     Dosage: 1 DF, QHS
     Route: 048
     Dates: start: 20030101
  11. PANTOPRAZOLE SODIUM [Concomitant]
     Route: 048
  12. CAPOTEN [Concomitant]
     Indication: BLOOD PRESSURE INCREASED
     Route: 048
  13. DIOVAN [Concomitant]
     Indication: BLOOD PRESSURE INCREASED

REACTIONS (9)
  - BLOOD PRESSURE INCREASED [None]
  - CONFUSIONAL STATE [None]
  - DIARRHOEA [None]
  - ENTERITIS INFECTIOUS [None]
  - HYPERGLYCAEMIA [None]
  - NAUSEA [None]
  - POLLAKIURIA [None]
  - URINARY INCONTINENCE [None]
  - VOMITING [None]
